FAERS Safety Report 19421946 (Version 5)
Quarter: 2021Q3

REPORT INFORMATION
  Report Type: Spontaneous
  Country: US (occurrence: US)
  Receive Date: 20210616
  Receipt Date: 20210806
  Transmission Date: 20211014
  Serious: Yes (Disabling, Other)
  Sender: FDA-Public Use
  Company Number: ALC2021US003816

PATIENT
  Age: 86 Year
  Sex: Female
  Weight: 58.96 kg

DRUGS (17)
  1. ALBUTEROL SULFATE AND IPRATROPIUM BROMIDE [Concomitant]
     Active Substance: ALBUTEROL SULFATE\IPRATROPIUM BROMIDE
     Indication: PRODUCT USED FOR UNKNOWN INDICATION
     Dosage: 3 ML
     Route: 055
  2. BROLUCIZUMAB. [Suspect]
     Active Substance: BROLUCIZUMAB
     Indication: CHOROIDAL NEOVASCULARISATION
  3. EYLEA [Suspect]
     Active Substance: AFLIBERCEPT
     Indication: VISUAL IMPAIRMENT
     Dosage: 20 MG/0.05 ML, RIGHT EYE
     Route: 031
     Dates: start: 20210601
  4. EYLEA [Suspect]
     Active Substance: AFLIBERCEPT
     Indication: CHOROIDAL NEOVASCULARISATION
  5. VIT D [Concomitant]
     Active Substance: VITAMIN D NOS
     Indication: PRODUCT USED FOR UNKNOWN INDICATION
     Dosage: 1 UNK, QD
     Route: 048
  6. REFRESH [CARBOMER] [Concomitant]
     Active Substance: CARBOMER
     Indication: PRODUCT USED FOR UNKNOWN INDICATION
     Dosage: 1 GTT PRN OU
     Route: 047
  7. PHENYLEPHRINE HCL 2.5 % [Suspect]
     Active Substance: PHENYLEPHRINE HYDROCHLORIDE
     Indication: PRODUCT USED FOR UNKNOWN INDICATION
     Dosage: UNK
     Route: 047
  8. BROLUCIZUMAB. [Suspect]
     Active Substance: BROLUCIZUMAB
     Indication: NEOVASCULAR AGE-RELATED MACULAR DEGENERATION
     Route: 065
  9. EYLEA [Suspect]
     Active Substance: AFLIBERCEPT
     Indication: NEOVASCULAR AGE-RELATED MACULAR DEGENERATION
     Dosage: 20 MG/0.05 ML, LEFT EYE;
     Route: 031
     Dates: start: 20210420
  10. LEVOTHYROXINE SODIUM. [Concomitant]
     Active Substance: LEVOTHYROXINE SODIUM
     Indication: PRODUCT USED FOR UNKNOWN INDICATION
     Dosage: 88 UG, QD
     Route: 048
  11. BETADINE [Concomitant]
     Active Substance: POVIDONE-IODINE
     Indication: PRODUCT USED FOR UNKNOWN INDICATION
     Route: 065
  12. BROLUCIZUMAB. [Suspect]
     Active Substance: BROLUCIZUMAB
     Indication: NEOVASCULAR AGE-RELATED MACULAR DEGENERATION
     Dosage: 6 MG/0.05 ML,RIGHT EYE
     Route: 031
     Dates: start: 20210209
  13. SERTRALINE [Concomitant]
     Active Substance: SERTRALINE HYDROCHLORIDE
     Indication: PRODUCT USED FOR UNKNOWN INDICATION
     Dosage: 100 MG
     Route: 048
  14. AMLODIPINE [Concomitant]
     Active Substance: AMLODIPINE BESYLATE
     Indication: PRODUCT USED FOR UNKNOWN INDICATION
     Dosage: 2.5 MG, QD
     Route: 048
  15. IPRATROPIUM BROMIDE. [Concomitant]
     Active Substance: IPRATROPIUM BROMIDE
     Indication: PRODUCT USED FOR UNKNOWN INDICATION
     Route: 065
  16. TROPICAMIDE. [Suspect]
     Active Substance: TROPICAMIDE
     Indication: PRODUCT USED FOR UNKNOWN INDICATION
     Dosage: UNK
     Route: 047
  17. BROLUCIZUMAB. [Suspect]
     Active Substance: BROLUCIZUMAB
     Indication: CHOROIDAL NEOVASCULARISATION
     Dosage: 6 MG/0.05 ML,LEFT EYE
     Route: 031
     Dates: start: 20210217

REACTIONS (13)
  - Eye inflammation [Recovered/Resolved with Sequelae]
  - Vision blurred [Unknown]
  - Blindness [Unknown]
  - Vitreous floaters [Recovered/Resolved with Sequelae]
  - Visual impairment [Recovered/Resolved with Sequelae]
  - Detachment of retinal pigment epithelium [Unknown]
  - Chorioretinitis [Unknown]
  - Uveitis [Recovered/Resolved with Sequelae]
  - Vitreous opacities [Unknown]
  - Intraocular pressure increased [Unknown]
  - Macular oedema [Recovered/Resolved with Sequelae]
  - Retinal cyst [Unknown]
  - Eye irritation [Unknown]

NARRATIVE: CASE EVENT DATE: 20210217
